FAERS Safety Report 6713518-3 (Version None)
Quarter: 2010Q2

REPORT INFORMATION
  Report Type: 
  Country: None (occurrence: None)
  Receive Date: 20100504
  Receipt Date: 20100415
  Transmission Date: 20101027
  Serious: Yes (Other)
  Sender: FDA-Public Use
  Company Number: 1000013518

PATIENT
  Sex: Male
  Weight: 99 kg

DRUGS (4)
  1. ESCITALOPRAM [Suspect]
     Indication: DEPRESSION
     Dosage: 20 MG (20MG, 1 IN 1 D), ORAL
     Route: 048
     Dates: start: 20090701, end: 20091201
  2. ESCITALOPRAM [Suspect]
     Indication: WEIGHT LOSS DIET
     Dosage: 20 MG (20MG, 1 IN 1 D), ORAL
     Route: 048
     Dates: start: 20090701, end: 20091201
  3. . [Concomitant]
  4. COKENZEN [Concomitant]

REACTIONS (2)
  - ANGIOEDEMA [None]
  - OFF LABEL USE [None]
